FAERS Safety Report 21191452 (Version 1)
Quarter: 2022Q3

REPORT INFORMATION
  Report Type: Spontaneous
  Country: US (occurrence: US)
  Receive Date: 20220809
  Receipt Date: 20220809
  Transmission Date: 20221027
  Serious: No
  Sender: FDA-Public Use
  Company Number: US-JOURNEY MEDICAL CORPORATION-2022JNY00625

PATIENT
  Age: 27 Year
  Sex: Female
  Weight: 54.422 kg

DRUGS (3)
  1. QBREXZA [Suspect]
     Active Substance: GLYCOPYRRONIUM TOSYLATE
     Indication: Hyperhidrosis
     Dosage: 1 SWIPE OVER EACH ARMPIT WITH THE SAME CLOTH, 1X/DAY NIGHTLY
     Route: 061
     Dates: start: 20220322, end: 20220327
  2. QBREXZA [Suspect]
     Active Substance: GLYCOPYRRONIUM TOSYLATE
     Dosage: 1 SWIPE OVER EACH ARMPIT WITH THE SAME CLOTH, 1X/WEEK AT NIGHT
     Route: 061
     Dates: start: 20220328
  3. VITAMIN B12 [Concomitant]
     Active Substance: CYANOCOBALAMIN
     Dosage: UNK, 1X/DAY

REACTIONS (2)
  - Dysuria [Recovering/Resolving]
  - Inappropriate schedule of product administration [Unknown]

NARRATIVE: CASE EVENT DATE: 20220301
